FAERS Safety Report 6358427-7 (Version None)
Quarter: 2009Q3

REPORT INFORMATION
  Report Type: 
  Country: None (occurrence: None)
  Receive Date: 20090916
  Receipt Date: 20090909
  Transmission Date: 20100115
  Serious: Yes (Hospitalization)
  Sender: FDA-Public Use
  Company Number: TR-ABBOTT-09P-161-0597377-00

PATIENT
  Age: 44 Year
  Sex: Female

DRUGS (3)
  1. CYCLOSPORINE [Suspect]
     Indication: PUSTULAR PSORIASIS
  2. FLUOXETINE [Interacting]
     Indication: PSYCHIATRIC SYMPTOM
  3. ACITRETIN [Interacting]
     Indication: PSYCHIATRIC SYMPTOM

REACTIONS (1)
  - DRUG INTERACTION [None]
